FAERS Safety Report 15230962 (Version 1)
Quarter: 2018Q3

REPORT INFORMATION
  Report Type: Spontaneous
  Country: US (occurrence: US)
  Receive Date: 20180802
  Receipt Date: 20180802
  Transmission Date: 20181010
  Serious: Yes (Other)
  Sender: FDA-Public Use
  Company Number: US-ACCORD-063217

PATIENT
  Age: 60 Year
  Sex: Female

DRUGS (31)
  1. GLUCOPHAGE [Concomitant]
     Active Substance: METFORMIN HYDROCHLORIDE
     Dosage: STRENGTH: 500 MG?TAKE 1 PO BID
     Route: 048
  2. CYTOXAN [Suspect]
     Active Substance: CYCLOPHOSPHAMIDE
     Indication: BREAST CANCER RECURRENT
  3. NEOSAR [Suspect]
     Active Substance: CYCLOPHOSPHAMIDE
     Indication: BREAST CANCER RECURRENT
  4. LORAZEPAM. [Concomitant]
     Active Substance: LORAZEPAM
     Indication: NAUSEA
     Dosage: STRENGTH: 0.5 MG?TAKE 1 PO 06H PRN
     Route: 048
  5. COLECALCIFEROL [Concomitant]
     Active Substance: CHOLECALCIFEROL
     Dosage: STRENGTH: 50000 UNIT?TAKE 1 PO WEEK
     Route: 048
  6. DOCETAXEL ACCORD [Suspect]
     Active Substance: DOCETAXEL
     Indication: BREAST CANCER RECURRENT
     Dates: start: 20130321, end: 20130627
  7. SPIRONOLACTONE. [Concomitant]
     Active Substance: SPIRONOLACTONE
     Dosage: STRENGTH: 50 MG?TAKE 1 PO DAILY
     Route: 048
  8. LIPITOR [Concomitant]
     Active Substance: ATORVASTATIN CALCIUM
     Dosage: STRENGTH: 80 MG?TAKE 1 PO DAILY
     Route: 048
  9. CHLORTALIDONE [Concomitant]
     Active Substance: CHLORTHALIDONE
     Dosage: STRENGTH: 25 MG?TAKE 1 PO DAILY
     Route: 048
  10. AMLODIPINE [Concomitant]
     Active Substance: AMLODIPINE BESYLATE
     Dosage: STRENGTH: 10 MG?TAKE 1 PO DAILY
     Route: 048
  11. ZETIA [Concomitant]
     Active Substance: EZETIMIBE
     Dosage: STRENGTH: 10 MG?TAKE 1 PO DAILY
     Route: 048
  12. GEMFIBROZIL. [Concomitant]
     Active Substance: GEMFIBROZIL
     Dosage: STRENGTH: 600 MG?TAKE 1 PO BID
     Route: 048
  13. HUMULIN R?U?500 [Concomitant]
  14. CYMBALTA [Concomitant]
     Active Substance: DULOXETINE HYDROCHLORIDE
     Dosage: STRENGTH: 60 MG ?TAKE 1.5 PO DAILY
     Route: 048
  15. OMEPRAZOLE. [Concomitant]
     Active Substance: OMEPRAZOLE
     Dosage: STRENGTH: 20 MG?TAKE 1 CAPSULE PO BID
     Route: 048
  16. LETROZOLE. [Concomitant]
     Active Substance: LETROZOLE
  17. NIFEDICAL XL [Concomitant]
     Active Substance: NIFEDIPINE
  18. CARVEDILOL/CARVEDILOL HYDROCHLODRIDE [Concomitant]
     Dosage: STRENGTH: 3.125 MG?TAKE 1 PO BID
     Route: 048
  19. NAPROXEN. [Concomitant]
     Active Substance: NAPROXEN
  20. LISINOPRIL. [Concomitant]
     Active Substance: LISINOPRIL
     Dosage: STRENGTH: 40 MG?TAKE 1 PO DAILY
     Route: 048
  21. LEVOTHYROXINE. [Concomitant]
     Active Substance: LEVOTHYROXINE
     Dosage: STRENGTH: 125 MCG?TAKE 1 PO DAILY
     Route: 048
  22. GABAPENTIN. [Concomitant]
     Active Substance: GABAPENTIN
     Dosage: STRENGTH: 300 MG?TAKE 2 PO TID
     Route: 048
  23. TRAZODONE [Concomitant]
     Active Substance: TRAZODONE HYDROCHLORIDE
     Dosage: STRENGTH: 50 MG?TAKE 1 PO PRN
     Route: 048
  24. ERGOCALCIFEROL. [Concomitant]
     Active Substance: ERGOCALCIFEROL
  25. EMLA [Concomitant]
     Active Substance: LIDOCAINE\PRILOCAINE
     Dosage: STRENGTH: 2.5%?2.5%?TAKE 1 TOPICAL APPLICATION
     Route: 061
  26. PROCHLORPERAZINE. [Concomitant]
     Active Substance: PROCHLORPERAZINE
     Indication: NAUSEA
     Dosage: STRENGTH: 10 MG?TAKE 1 PO 06H PRN
     Route: 048
  27. TIZANIDINE. [Concomitant]
     Active Substance: TIZANIDINE
     Dosage: STRENGTH: 2 MG?TAKE 1 PO BID
     Route: 048
  28. OXYCODONE/OXYCODONE HYDROCHLORIDE/OXYCODONE PECTINATE/OXYCODONE TEREPHTHALATE [Concomitant]
  29. OMEPRAZOLE. [Concomitant]
     Active Substance: OMEPRAZOLE
  30. ASPIR 81 [Concomitant]
     Dosage: STRENGTH: 81 MG?TAKE 1 TABLET(S) PO DAILY
     Route: 048
  31. TRAMADOL. [Concomitant]
     Active Substance: TRAMADOL
     Dosage: STRENGTH: 50 MG?TAKE 1 PO Q6H
     Route: 048

REACTIONS (1)
  - Alopecia [Not Recovered/Not Resolved]

NARRATIVE: CASE EVENT DATE: 20131201
